FAERS Safety Report 19865756 (Version 2)
Quarter: 2022Q3

REPORT INFORMATION
  Report Type: Spontaneous
  Country: US (occurrence: US)
  Receive Date: 20210922
  Receipt Date: 20220720
  Transmission Date: 20221026
  Serious: Yes (Hospitalization, Other)
  Sender: FDA-Public Use
  Company Number: None

PATIENT
  Age: 69 Year
  Sex: Male

DRUGS (2)
  1. MYCOPHENOLATE MOFETIL [Suspect]
     Active Substance: MYCOPHENOLATE MOFETIL
     Indication: Immunosuppression
     Dosage: UNK
     Route: 065
     Dates: start: 2018
  2. TACROLIMUS [Suspect]
     Active Substance: TACROLIMUS
     Indication: Immunosuppression
     Dosage: UNK
     Route: 065
     Dates: start: 2018

REACTIONS (7)
  - Acute kidney injury [Unknown]
  - Transplant dysfunction [Unknown]
  - Kaposi^s sarcoma [Unknown]
  - Hydronephrosis [Unknown]
  - Human herpesvirus 8 infection [Unknown]
  - Toxicity to various agents [Unknown]
  - Drug level increased [Unknown]
